FAERS Safety Report 4716140-3 (Version None)
Quarter: 2005Q3

REPORT INFORMATION
  Report Type: 
  Country: None (occurrence: None)
  Receive Date: 20050718
  Receipt Date: 20050309
  Transmission Date: 20060218
  Serious: Yes (Hospitalization)
  Sender: FDA-Public Use
  Company Number: CA-MERCK-0503CAN00090

PATIENT
  Age: 60 Year
  Sex: Male
  Weight: 73 kg

DRUGS (41)
  1. VIOXX [Suspect]
     Indication: OSTEOARTHRITIS
     Route: 048
     Dates: start: 20000412, end: 20040101
  2. GLYBURIDE [Concomitant]
     Indication: DIABETES MELLITUS
     Route: 065
  3. RAMIPRIL [Concomitant]
     Indication: HYPERTENSION
     Route: 065
     Dates: start: 19900101
  4. ACARBOSE [Concomitant]
     Route: 065
     Dates: start: 20000107
  5. PRAVASTATIN SODIUM [Concomitant]
     Indication: BLOOD CHOLESTEROL INCREASED
     Route: 065
     Dates: start: 20000101, end: 20040101
  6. ROSIGLITAZONE MALEATE [Concomitant]
     Route: 065
  7. ROSIGLITAZONE MALEATE [Concomitant]
     Route: 065
  8. PIOGLITAZONE HYDROCHLORIDE [Concomitant]
     Indication: DIABETES MELLITUS
     Route: 065
  9. INSULIN HUMAN, ISOPHANE [Concomitant]
     Indication: DIABETES MELLITUS
     Route: 065
  10. INSULIN HUMAN [Concomitant]
     Indication: DIABETES MELLITUS
     Route: 065
  11. RANITIDINE HYDROCHLORIDE [Concomitant]
     Route: 065
  12. CLOPIDOGREL BISULFATE [Concomitant]
     Indication: CEREBROVASCULAR ACCIDENT PROPHYLAXIS
     Route: 065
  13. NIFEDIPINE [Concomitant]
     Route: 065
     Dates: start: 20020305, end: 20020101
  14. AMITRIPTYLINE HYDROCHLORIDE [Concomitant]
     Indication: DEPRESSION
     Route: 065
     Dates: start: 20021028
  15. AMITRIPTYLINE HYDROCHLORIDE [Concomitant]
     Route: 065
     Dates: start: 20021028
  16. AMITRIPTYLINE HYDROCHLORIDE [Concomitant]
     Indication: ANXIETY
     Route: 065
     Dates: start: 20021028
  17. AMITRIPTYLINE HYDROCHLORIDE [Concomitant]
     Route: 065
     Dates: start: 20021028
  18. ALPRAZOLAM [Concomitant]
     Indication: DEPRESSION
     Route: 065
  19. ALPRAZOLAM [Concomitant]
     Indication: ANXIETY
     Route: 065
  20. SULFAMETHOXAZOLE [Concomitant]
     Route: 065
  21. SULFAMETHOXAZOLE [Concomitant]
     Route: 065
     Dates: start: 20010402
  22. OFLOXACIN [Concomitant]
     Route: 065
  23. OFLOXACIN [Concomitant]
     Route: 065
     Dates: start: 20011106
  24. NORFLOXACIN [Concomitant]
     Route: 065
  25. NORFLOXACIN [Concomitant]
     Route: 065
     Dates: start: 20011113
  26. DOXYCYCLINE [Concomitant]
     Route: 065
     Dates: start: 20011120
  27. ACETAMINOPHEN AND CODEINE PHOSPHATE [Concomitant]
     Indication: OSTEOARTHRITIS
     Route: 065
     Dates: start: 20000107
  28. ACETAMINOPHEN AND CODEINE PHOSPHATE [Concomitant]
     Indication: PAIN
     Route: 065
     Dates: start: 20000107
  29. CELECOXIB [Concomitant]
     Indication: OSTEOARTHRITIS
     Route: 065
     Dates: start: 20000107, end: 20010312
  30. CELECOXIB [Concomitant]
     Indication: PAIN
     Route: 065
     Dates: start: 20000107, end: 20010312
  31. MELOXICAM [Concomitant]
     Indication: OSTEOARTHRITIS
     Route: 065
     Dates: start: 20020108
  32. MELOXICAM [Concomitant]
     Indication: PAIN
     Route: 065
     Dates: start: 20020108
  33. NAPROXEN [Concomitant]
     Indication: OSTEOARTHRITIS
     Route: 065
     Dates: start: 20020924
  34. NAPROXEN [Concomitant]
     Indication: PAIN
     Route: 065
     Dates: start: 20020924
  35. ACETAMINOPHEN [Concomitant]
     Indication: OSTEOARTHRITIS
     Route: 065
     Dates: start: 20000101
  36. INDOMETHACIN [Concomitant]
     Indication: OSTEOARTHRITIS
     Route: 065
     Dates: start: 20020101, end: 20020101
  37. METFORMIN HYDROCHLORIDE [Concomitant]
     Indication: DIABETES MELLITUS
     Route: 065
  38. IBUPROFEN [Concomitant]
     Indication: OSTEOARTHRITIS
     Route: 065
     Dates: start: 19950101, end: 20010101
  39. CEFUROXIME [Concomitant]
     Route: 065
     Dates: start: 20021007
  40. FUSIDIC ACID [Concomitant]
     Route: 065
     Dates: start: 20021007
  41. SULFAMETHOXAZOLE AND TRIMETHOPRIM [Concomitant]
     Indication: PROSTATITIS
     Route: 065

REACTIONS (16)
  - AGEUSIA [None]
  - AMNESIA [None]
  - ATHEROSCLEROSIS [None]
  - BLOOD GLUCOSE DECREASED [None]
  - BUNDLE BRANCH BLOCK RIGHT [None]
  - CEREBRAL INFARCTION [None]
  - CEREBROVASCULAR ACCIDENT [None]
  - DEPRESSION [None]
  - DIZZINESS [None]
  - ERECTILE DYSFUNCTION [None]
  - FACIAL PALSY [None]
  - MITRAL VALVE INCOMPETENCE [None]
  - PULMONARY HYPERTENSION [None]
  - SPINAL COLUMN STENOSIS [None]
  - VENTRICULAR DYSFUNCTION [None]
  - VENTRICULAR HYPERTROPHY [None]
